FAERS Safety Report 19689941 (Version 1)
Quarter: 2021Q3

REPORT INFORMATION
  Report Type: Spontaneous
  Country: CA (occurrence: CA)
  Receive Date: 20210812
  Receipt Date: 20210812
  Transmission Date: 20211014
  Serious: Yes (Other)
  Sender: FDA-Public Use
  Company Number: CA-GLAXOSMITHKLINE-CA2021AMR103144

PATIENT
  Age: 67 Year
  Sex: Female

DRUGS (3)
  1. ZEJULA [Suspect]
     Active Substance: NIRAPARIB
     Indication: MALIGNANT PERITONEAL NEOPLASM
  2. ZEJULA [Suspect]
     Active Substance: NIRAPARIB
     Indication: OVARIAN EPITHELIAL CANCER RECURRENT
     Dosage: 200 MG, QD
     Route: 048
     Dates: start: 20210510, end: 20210616
  3. ZEJULA [Suspect]
     Active Substance: NIRAPARIB
     Indication: FALLOPIAN TUBE CANCER

REACTIONS (10)
  - Ocular discomfort [Unknown]
  - Neuropathy peripheral [Recovered/Resolved]
  - Condition aggravated [Unknown]
  - Blood pressure increased [Unknown]
  - Hypoaesthesia [Not Recovered/Not Resolved]
  - Headache [Unknown]
  - Constipation [Unknown]
  - Paraesthesia [Not Recovered/Not Resolved]
  - Eye disorder [Unknown]
  - Cough [Not Recovered/Not Resolved]

NARRATIVE: CASE EVENT DATE: 20210510
